FAERS Safety Report 5500420-8 (Version None)
Quarter: 2007Q4

REPORT INFORMATION
  Report Type: 
  Country: None (occurrence: None)
  Receive Date: 20071029
  Receipt Date: 20071026
  Transmission Date: 20080405
  Serious: Yes (Hospitalization, Other)
  Sender: FDA-Public Use
  Company Number: CL-BRISTOL-MYERS SQUIBB COMPANY-13500079

PATIENT
  Age: 61 Year
  Sex: Female

DRUGS (13)
  1. CISPLATIN [Suspect]
     Indication: GASTRIC CANCER
     Route: 042
     Dates: start: 20060804, end: 20060804
  2. FLUOROURACIL [Suspect]
     Indication: GASTRIC CANCER
     Dosage: CYCLE 1, DAYS 1 TO 5 EVERY 28 DAYS
     Route: 042
     Dates: start: 20060804, end: 20060809
  3. NISTORAL [Concomitant]
     Indication: ANTIFUNGAL PROPHYLAXIS
     Route: 048
     Dates: start: 20060804, end: 20060820
  4. TIMAROL [Concomitant]
     Route: 048
     Dates: start: 20060810, end: 20060817
  5. PARACETAMOL [Concomitant]
     Indication: STOMATITIS
     Route: 048
     Dates: start: 20060809
  6. PARACETAMOL [Concomitant]
     Route: 048
     Dates: start: 20060818
  7. FLUCONAZOLE [Concomitant]
     Indication: ANTIFUNGAL PROPHYLAXIS
     Route: 048
     Dates: start: 20060818
  8. CEFTRIAXONE SODIUM [Concomitant]
     Indication: ANTIBIOTIC PROPHYLAXIS
     Route: 042
     Dates: start: 20060817
  9. CIPROFLOXACIN [Concomitant]
     Indication: ANTIBIOTIC PROPHYLAXIS
     Route: 042
     Dates: start: 20060817
  10. HEXETIDINE [Concomitant]
     Indication: STOMATITIS
     Route: 048
     Dates: start: 20060804, end: 20060822
  11. TRAMADOL HCL [Concomitant]
     Route: 048
     Dates: start: 20060810, end: 20060817
  12. MUCAINE [Concomitant]
     Route: 048
     Dates: start: 20060810
  13. MISTRAL [Concomitant]

REACTIONS (3)
  - DEHYDRATION [None]
  - FEBRILE NEUTROPENIA [None]
  - STOMATITIS [None]
